FAERS Safety Report 11796653 (Version 2)
Quarter: 2016Q1

REPORT INFORMATION
  Report Type: Spontaneous
  Country: US (occurrence: US)
  Receive Date: 20151203
  Receipt Date: 20160108
  Transmission Date: 20160525
  Serious: Yes (Hospitalization, Other)
  Sender: FDA-Public Use
  Company Number: US-GLAXOSMITHKLINE-US2015171310

PATIENT
  Sex: Male

DRUGS (13)
  1. CRESTOR [Concomitant]
     Active Substance: ROSUVASTATIN CALCIUM
  2. FLUTICASONE [Concomitant]
     Active Substance: FLUTICASONE\FLUTICASONE PROPIONATE
  3. BENICAR [Concomitant]
     Active Substance: OLMESARTAN MEDOXOMIL
  4. PRILOSEC [Concomitant]
     Active Substance: OMEPRAZOLE MAGNESIUM
  5. ADVAIR DISKUS [Suspect]
     Active Substance: FLUTICASONE PROPIONATE\SALMETEROL XINAFOATE
     Dosage: 1 PUFF(S), BID
     Route: 055
  6. SYNTHROID [Concomitant]
     Active Substance: LEVOTHYROXINE SODIUM
  7. METFORMIN [Concomitant]
     Active Substance: METFORMIN HYDROCHLORIDE
  8. ADVAIR DISKUS [Suspect]
     Active Substance: FLUTICASONE PROPIONATE\SALMETEROL XINAFOATE
     Indication: ASTHMA
     Dosage: 1 PUFF(S), PRN
     Route: 055
  9. ADVAIR DISKUS [Suspect]
     Active Substance: FLUTICASONE PROPIONATE\SALMETEROL XINAFOATE
     Dosage: 1 PUFF(S), QD
     Route: 055
  10. ASPIRIN. [Concomitant]
     Active Substance: ASPIRIN
  11. BYSTOLIC [Concomitant]
     Active Substance: NEBIVOLOL HYDROCHLORIDE
  12. PRESERVISION [Concomitant]
     Active Substance: MINERALS\VITAMINS
  13. XARELTO [Concomitant]
     Active Substance: RIVAROXABAN

REACTIONS (10)
  - Hernia repair [Unknown]
  - Underdose [Unknown]
  - Facial bones fracture [Unknown]
  - Road traffic accident [Unknown]
  - Concussion [Unknown]
  - Therapeutic response unexpected [Unknown]
  - Cardioversion [Unknown]
  - Respiratory tract infection [Not Recovered/Not Resolved]
  - Stent placement [Unknown]
  - Nephrolithiasis [Unknown]
